FAERS Safety Report 7445353-5 (Version None)
Quarter: 2011Q2

REPORT INFORMATION
  Report Type: 
  Country: None (occurrence: None)
  Receive Date: 20110429
  Receipt Date: 20100830
  Transmission Date: 20111010
  Serious: No
  Sender: FDA-Public Use
  Company Number: A0878414A

PATIENT
  Sex: Female

DRUGS (1)
  1. ONDANSETRON [Suspect]
     Indication: PROPHYLAXIS OF NAUSEA AND VOMITING
     Dosage: 8MG THREE TIMES PER DAY
     Route: 048
     Dates: start: 20090101

REACTIONS (4)
  - NAUSEA [None]
  - VOMITING [None]
  - DRUG INEFFECTIVE [None]
  - ABDOMINAL PAIN UPPER [None]
